FAERS Safety Report 23515594 (Version 1)
Quarter: 2024Q1

REPORT INFORMATION
  Report Type: Other
  Country: JP (occurrence: JP)
  Receive Date: 20240213
  Receipt Date: 20240213
  Transmission Date: 20240409
  Serious: Yes (Hospitalization, Other)
  Sender: FDA-Public Use
  Company Number: JP-DEXPHARM-20240245

PATIENT
  Age: 93 Year
  Sex: Male

DRUGS (9)
  1. ASPIRIN [Concomitant]
     Active Substance: ASPIRIN
     Dosage: 200 MG/DAY
  2. CLOPIDOGREL [Suspect]
     Active Substance: CLOPIDOGREL BISULFATE
     Dosage: 75 MG/DAY
  3. CLOPIDOGREL [Suspect]
     Active Substance: CLOPIDOGREL BISULFATE
     Dosage: 50 MG/DAY
  4. LANSOPRAZOLE [Suspect]
     Active Substance: LANSOPRAZOLE
     Dosage: 15 MG/DAY
  5. ROSUVASTATIN [Concomitant]
     Active Substance: ROSUVASTATIN
     Dosage: 2.5 MG/DAY
  6. NICARDIPINE [Concomitant]
     Active Substance: NICARDIPINE
     Dosage: 48 MG/DAY
  7. AMPICILLIN SODIUM\SULBACTAM SODIUM [Concomitant]
     Active Substance: AMPICILLIN SODIUM\SULBACTAM SODIUM
     Indication: Pneumonia aspiration
     Dosage: 6 G/DAY
     Route: 050
  8. HERBALS [Suspect]
     Active Substance: HERBALS
     Indication: Pneumonia aspiration
     Dosage: 5 G/DAY
     Route: 050
  9. ELOBIXIBAT [Suspect]
     Active Substance: ELOBIXIBAT
     Indication: Constipation

REACTIONS (1)
  - Agranulocytosis [Recovered/Resolved]
